FAERS Safety Report 17557697 (Version 2)
Quarter: 2020Q1

REPORT INFORMATION
  Report Type: Spontaneous
  Country: US (occurrence: US)
  Receive Date: 20200319
  Receipt Date: 20200331
  Transmission Date: 20200409
  Serious: Yes (Other)
  Sender: FDA-Public Use
  Company Number: US-ABBVIE-20K-163-3324675-00

PATIENT
  Age: 85 Year
  Sex: Female
  Weight: 61.29 kg

DRUGS (1)
  1. SYNTHROID [Suspect]
     Active Substance: LEVOTHYROXINE SODIUM
     Indication: PRODUCT USED FOR UNKNOWN INDICATION
     Route: 048

REACTIONS (5)
  - Cerebrovascular accident [Unknown]
  - Speech disorder [Unknown]
  - Accident [Unknown]
  - Cataract [Unknown]
  - Dysphagia [Unknown]

NARRATIVE: CASE EVENT DATE: 20200315
